FAERS Safety Report 9180233 (Version 2)
Quarter: 2013Q2

REPORT INFORMATION
  Report Type: Spontaneous
  Country: US (occurrence: US)
  Receive Date: 20130322
  Receipt Date: 20130621
  Transmission Date: 20140414
  Serious: No
  Sender: FDA-Public Use
  Company Number: US-009507513-1303USA010788

PATIENT
  Sex: 0

DRUGS (2)
  1. IMPLANON [Suspect]
     Route: 059
  2. IMPLANON [Suspect]
     Route: 059

REACTIONS (3)
  - Device breakage [Unknown]
  - Device difficult to use [Recovered/Resolved]
  - No adverse event [Unknown]
